FAERS Safety Report 25582724 (Version 2)
Quarter: 2025Q3

REPORT INFORMATION
  Report Type: Report from Study
  Country: CA (occurrence: CA)
  Receive Date: 20250720
  Receipt Date: 20250722
  Transmission Date: 20251020
  Serious: Yes (Other)
  Sender: HLS THERAPEUTICS
  Company Number: CA-HLS-202501849

PATIENT
  Sex: Female

DRUGS (1)
  1. CLOZARIL [Suspect]
     Active Substance: CLOZAPINE
     Indication: Product used for unknown indication
     Route: 048
     Dates: start: 20180615, end: 20250611

REACTIONS (8)
  - Choking [Recovered/Resolved]
  - Fall [Recovered/Resolved]
  - Balance disorder [Recovered/Resolved]
  - Polyarthritis [Unknown]
  - Schizoaffective disorder [Unknown]
  - Eating disorder [Recovered/Resolved]
  - Labelled drug-drug interaction issue [Unknown]
  - Dysphagia [Recovered/Resolved]
